FAERS Safety Report 10206287 (Version 1)
Quarter: 2014Q2

REPORT INFORMATION
  Report Type: Spontaneous
  Country: US (occurrence: None)
  Receive Date: 20140527
  Receipt Date: 20140527
  Transmission Date: 20141212
  Serious: Yes (Hospitalization)
  Sender: FDA-Public Use
  Company Number: UNT-2014-000575

PATIENT
  Age: 55 Year
  Sex: Female
  Weight: 106.5 kg

DRUGS (2)
  1. REMODULIN [Suspect]
     Indication: COR PULMONALE CHRONIC
     Route: 041
     Dates: start: 20131211
  2. ADEMPAS (RIOCIGUAT) [Concomitant]

REACTIONS (2)
  - Heart rate increased [None]
  - Injection site pain [None]
